FAERS Safety Report 6505834-5 (Version None)
Quarter: 2009Q4

REPORT INFORMATION
  Report Type: 
  Country: None (occurrence: None)
  Receive Date: 20091217
  Receipt Date: 20091217
  Transmission Date: 20100525
  Serious: Yes (Other)
  Sender: FDA-Public Use
  Company Number: None

PATIENT
  Age: 52 Year
  Sex: Female
  Weight: 102.0593 kg

DRUGS (2)
  1. MELOXICAM [Suspect]
     Indication: FIBROMYALGIA
     Dosage: ONE TABLET DAILY PO
     Route: 048
     Dates: start: 20091203, end: 20091213
  2. MELOXICAM [Suspect]
     Indication: OSTEOARTHRITIS
     Dosage: ONE TABLET DAILY PO
     Route: 048
     Dates: start: 20091203, end: 20091213

REACTIONS (8)
  - ARTHRALGIA [None]
  - CONDITION AGGRAVATED [None]
  - DRUG INEFFECTIVE [None]
  - FIBROMYALGIA [None]
  - GAIT DISTURBANCE [None]
  - MUSCLE STRAIN [None]
  - PRODUCT QUALITY ISSUE [None]
  - TREATMENT FAILURE [None]
